FAERS Safety Report 19570759 (Version 1)
Quarter: 2021Q3

REPORT INFORMATION
  Report Type: Spontaneous
  Country: JP (occurrence: JP)
  Receive Date: 20210716
  Receipt Date: 20210716
  Transmission Date: 20211014
  Serious: Yes (Other)
  Sender: FDA-Public Use
  Company Number: JP-REGENERON PHARMACEUTICALS, INC.-2021-69120

PATIENT

DRUGS (3)
  1. EYLEA [Suspect]
     Active Substance: AFLIBERCEPT
     Dosage: MONTHLY ADMINISTRATION ON FEBRUARY, MARCH AND APRIL. LEFT EYE
     Route: 031
     Dates: start: 20210413
  2. MAQAID [Concomitant]
     Active Substance: TRIAMCINOLONE ACETONIDE
     Indication: DIABETIC RETINAL OEDEMA
     Dosage: UNK
     Dates: start: 2020
  3. EYLEA [Suspect]
     Active Substance: AFLIBERCEPT
     Indication: DIABETIC RETINAL OEDEMA
     Dosage: UNK
     Route: 031
     Dates: start: 202101

REACTIONS (1)
  - Hypotony maculopathy [Recovered/Resolved]

NARRATIVE: CASE EVENT DATE: 20210414
